FAERS Safety Report 23791380 (Version 2)
Quarter: 2024Q2

REPORT INFORMATION
  Report Type: Spontaneous
  Country: JP (occurrence: JP)
  Receive Date: 20240429
  Receipt Date: 20240521
  Transmission Date: 20240716
  Serious: Yes (Hospitalization, Other)
  Sender: FDA-Public Use
  Company Number: None

PATIENT
  Age: 85 Year
  Sex: Female
  Weight: 77 kg

DRUGS (21)
  1. TRESIBA [Suspect]
     Active Substance: INSULIN DEGLUDEC
     Dosage: 12 IU, QD (0-0-0-12)
     Route: 058
     Dates: start: 20240305
  2. TRESIBA [Suspect]
     Active Substance: INSULIN DEGLUDEC
     Dosage: 10 IU, QD (0-0-0-10)
     Route: 058
     Dates: start: 20240403
  3. TRESIBA [Suspect]
     Active Substance: INSULIN DEGLUDEC
     Dosage: 10 IU, QD (0-0-0-10)
     Route: 058
     Dates: start: 20240419
  4. TRESIBA [Suspect]
     Active Substance: INSULIN DEGLUDEC
     Dosage: 8 IU, QD (0-0-0-8)
     Route: 058
     Dates: start: 20240329
  5. TRESIBA [Suspect]
     Active Substance: INSULIN DEGLUDEC
     Indication: Type 1 diabetes mellitus
     Dosage: 16 IU, QD BEFORE BEDTIME
     Route: 058
     Dates: start: 201612
  6. TRESIBA [Suspect]
     Active Substance: INSULIN DEGLUDEC
     Dosage: 6 IU, QD (0-0-0-6 IU/DAY )
     Route: 058
     Dates: start: 20240319
  7. NOVORAPID [Suspect]
     Active Substance: INSULIN ASPART
     Dosage: UNK
     Route: 058
  8. NOVORAPID [Suspect]
     Active Substance: INSULIN ASPART
     Indication: Type 1 diabetes mellitus
     Dosage: 22 IU, QD ((6-10-6)IU/DAY)
     Route: 058
     Dates: start: 201603, end: 20240223
  9. RIVAROXABAN [Concomitant]
     Active Substance: RIVAROXABAN
     Indication: Product used for unknown indication
     Dosage: 10 MG, QD
     Route: 048
  10. AZILSARTAN KAMEDOXOMIL [Concomitant]
     Active Substance: AZILSARTAN KAMEDOXOMIL
     Indication: Product used for unknown indication
     Dosage: 40 MG, QD
     Route: 048
  11. PITAVASTATIN CALCIUM [Concomitant]
     Active Substance: PITAVASTATIN CALCIUM
     Indication: Product used for unknown indication
     Dosage: 2 MG, QD
     Route: 048
  12. AZOSEMIDE [Concomitant]
     Active Substance: AZOSEMIDE
     Indication: Product used for unknown indication
     Dosage: 30 MG, QD
     Route: 048
  13. TRICHLORMETHIAZIDE [Concomitant]
     Active Substance: TRICHLORMETHIAZIDE
     Indication: Product used for unknown indication
     Dosage: 2 MG, QD(QD, EVERY OTHER DAY)
     Route: 048
  14. KREMEZIN [Concomitant]
     Active Substance: ACTIVATED CHARCOAL
     Indication: Product used for unknown indication
     Dosage: 4DF, TID
     Route: 048
  15. TOPIROXOSTAT [Concomitant]
     Active Substance: TOPIROXOSTAT
     Indication: Product used for unknown indication
     Dosage: 40 MG, BID
     Route: 048
  16. INSULIN LISPRO [Concomitant]
     Active Substance: INSULIN LISPRO
     Indication: Product used for unknown indication
     Dosage: 14 IU, QD (6-4-4-0 IU/DAY)
  17. HUMULIN R [Concomitant]
     Active Substance: INSULIN HUMAN
     Indication: Product used for unknown indication
     Dosage: UNK
  18. HUMALOG [Suspect]
     Active Substance: INSULIN LISPRO
     Dosage: 15 IU, QD (6-5-4-0)
     Route: 058
     Dates: start: 20240319
  19. HUMALOG [Suspect]
     Active Substance: INSULIN LISPRO
     Dosage: 22 IU, QD (8-6-8)
     Route: 058
     Dates: start: 20240305
  20. HUMALOG [Suspect]
     Active Substance: INSULIN LISPRO
     Indication: Type 1 diabetes mellitus
     Dosage: 26IU, (10-6-10)SLIDING SCALE
     Route: 058
     Dates: start: 20240224
  21. HUMALOG [Suspect]
     Active Substance: INSULIN LISPRO
     Dosage: 14 IU, QD (6-4-4-0)
     Route: 058
     Dates: start: 20240319

REACTIONS (5)
  - Hyperkalaemia [Recovered/Resolved]
  - Dehydration [Recovered/Resolved]
  - Acute kidney injury [Unknown]
  - Diarrhoea [Unknown]
  - Hypoglycaemia [Recovered/Resolved]

NARRATIVE: CASE EVENT DATE: 20240224
